FAERS Safety Report 6198263-8 (Version None)
Quarter: 2009Q2

REPORT INFORMATION
  Report Type: 
  Country: None (occurrence: None)
  Receive Date: 20090521
  Receipt Date: 20090329
  Transmission Date: 20091009
  Serious: Yes (Death, Other)
  Sender: FDA-Public Use
  Company Number: ID-ROCHE-628708

PATIENT
  Age: 32 Year
  Sex: Male

DRUGS (1)
  1. OSELTAMIVIR [Suspect]
     Indication: AVIAN INFLUENZA
     Route: 065
     Dates: start: 20080126, end: 20080129

REACTIONS (2)
  - PNEUMONIA [None]
  - RESPIRATORY FAILURE [None]
